FAERS Safety Report 6125816-5 (Version None)
Quarter: 2009Q1

REPORT INFORMATION
  Report Type: 
  Country: None (occurrence: None)
  Receive Date: 20090320
  Receipt Date: 20090317
  Transmission Date: 20090719
  Serious: Yes (Life-Threatening, Hospitalization, Other)
  Sender: FDA-Public Use
  Company Number: PHHY2009DK09565

PATIENT
  Sex: Male

DRUGS (9)
  1. RASILEZ [Suspect]
     Indication: HYPERTENSION
     Dosage: ONE TABLET ONCE DAILY
     Dates: start: 20080812, end: 20090306
  2. CORODIL [Interacting]
     Dosage: ONE TABLET ONE DAILY
     Dates: start: 20011109
  3. MODAFINIL [Concomitant]
     Indication: NARCOLEPSY
     Dosage: 200 MG TWICE DAILY
     Dates: start: 20030219
  4. GLYBURIDE [Concomitant]
  5. HJERTEMAGNYL [Concomitant]
  6. JANUVIA [Concomitant]
  7. CLOMIPRAMINE HCL [Concomitant]
  8. METFORMIN HCL [Concomitant]
  9. CENTYL MED KALIUMKLORID [Concomitant]

REACTIONS (4)
  - ANGIOEDEMA [None]
  - DRUG INTERACTION [None]
  - HYPERSENSITIVITY [None]
  - LIP OEDEMA [None]
